FAERS Safety Report 8640964 (Version 2)
Quarter: 2012Q4

REPORT INFORMATION
  Report Type: 
  Country: FR (occurrence: FR)
  Receive Date: 20120628
  Receipt Date: 20120903
  Transmission Date: 20130627
  Serious: Yes (Hospitalization, Other)
  Sender: FDA-Public Use
  Company Number: PHHY2012FR054122

PATIENT
  Age: 69 None
  Sex: Female

DRUGS (1)
  1. TASIGNA [Suspect]
     Indication: CHRONIC MYELOID LEUKAEMIA
     Dosage: 4 DF daily
     Route: 048
     Dates: start: 20060620, end: 20110112

REACTIONS (9)
  - Arterial disorder [Recovering/Resolving]
  - Femoral artery occlusion [Recovering/Resolving]
  - Peripheral arterial occlusive disease [Recovering/Resolving]
  - Gait disturbance [Recovering/Resolving]
  - Hair colour changes [Recovering/Resolving]
  - Hair texture abnormal [Recovering/Resolving]
  - Skin disorder [Recovering/Resolving]
  - Muscle spasms [Recovering/Resolving]
  - Pruritus [Recovering/Resolving]
